FAERS Safety Report 5775551-8 (Version None)
Quarter: 2008Q2

REPORT INFORMATION
  Report Type: 
  Country: None (occurrence: None)
  Receive Date: 20080617
  Receipt Date: 20080612
  Transmission Date: 20081010
  Serious: Yes (Hospitalization)
  Sender: FDA-Public Use
  Company Number: US-AVENTIS-200815258GDDC

PATIENT
  Age: 72 Year
  Sex: Male
  Weight: 104.55 kg

DRUGS (4)
  1. TAXOTERE [Suspect]
     Indication: PROSTATE CANCER
     Route: 042
     Dates: start: 20080331, end: 20080331
  2. DEXAMETHASONE TAB [Suspect]
     Indication: PREMEDICATION
     Dates: start: 20071029, end: 20080331
  3. PREDNISONE TAB [Suspect]
     Indication: PROSTATE CANCER
     Route: 048
     Dates: start: 20071029, end: 20080420
  4. CODE UNBROKEN [Suspect]
     Indication: PROSTATE CANCER
     Route: 048
     Dates: start: 20071029, end: 20080420

REACTIONS (4)
  - ACUTE RESPIRATORY DISTRESS SYNDROME [None]
  - CARDIO-RESPIRATORY ARREST [None]
  - CEREBRAL ISCHAEMIA [None]
  - VENTRICULAR FIBRILLATION [None]
